FAERS Safety Report 8153704-1 (Version None)
Quarter: 2012Q1

REPORT INFORMATION
  Report Type: 
  Country: None (occurrence: None)
  Receive Date: 20120221
  Receipt Date: 20120217
  Transmission Date: 20120608
  Serious: Yes (Other)
  Sender: FDA-Public Use
  Company Number: US-GLAXOSMITHKLINE-A0966344A

PATIENT
  Age: 12 Year
  Sex: Male

DRUGS (1)
  1. GAVISCON [Suspect]

REACTIONS (1)
  - HALLUCINATION [None]
